FAERS Safety Report 12804611 (Version 2)
Quarter: 2016Q4

REPORT INFORMATION
  Report Type: Report from Study
  Country: CA (occurrence: CA)
  Receive Date: 20161003
  Receipt Date: 20161010
  Transmission Date: 20170207
  Serious: Yes (Death, Life-Threatening, Hospitalization, Disabling, Other)
  Sender: FDA-Public Use
  Company Number: CA-ASTRAZENECA-2016SE90539

PATIENT
  Age: 69 Year
  Sex: Female
  Weight: 50.4 kg

DRUGS (11)
  1. HYDROMORPHONE [Concomitant]
     Active Substance: HYDROMORPHONE
     Dates: start: 201506
  2. LACTULOSE. [Concomitant]
     Active Substance: LACTULOSE
  3. TRAMADOL. [Concomitant]
     Active Substance: TRAMADOL
     Dates: start: 201506
  4. VITAMIN D [Concomitant]
     Active Substance: CHOLECALCIFEROL
  5. ACLASTA [Concomitant]
     Active Substance: ZOLEDRONIC ACID
  6. CORTEF [Concomitant]
     Active Substance: HYDROCORTISONE
     Indication: BLOOD CORTISOL
     Dates: start: 2004
  7. TECTA [Concomitant]
     Active Substance: PANTOPRAZOLE MAGNESIUM
  8. CELEBREX [Concomitant]
     Active Substance: CELECOXIB
  9. FULVESTRANT [Suspect]
     Active Substance: FULVESTRANT
     Indication: BREAST CANCER METASTATIC
     Route: 030
     Dates: start: 20151105, end: 20160712
  10. ABEMACICLIB CODE NOT BROKEN [Suspect]
     Active Substance: ABEMACICLIB
     Indication: BREAST CANCER METASTATIC
     Dosage: CYCLICAL
     Route: 048
     Dates: start: 20151105, end: 20160712
  11. IMOVANE [Concomitant]
     Active Substance: ZOPICLONE

REACTIONS (1)
  - Organising pneumonia [Fatal]

NARRATIVE: CASE EVENT DATE: 20160815
